FAERS Safety Report 8241136-7 (Version None)
Quarter: 2012Q1

REPORT INFORMATION
  Report Type: 
  Country: None (occurrence: None)
  Receive Date: 20120328
  Receipt Date: 20120322
  Transmission Date: 20120608
  Serious: Yes (Disabling, Other)
  Sender: FDA-Public Use
  Company Number: US-PFIZER INC-2012044916

PATIENT
  Sex: Female
  Weight: 113 kg

DRUGS (4)
  1. PAXIL [Concomitant]
     Indication: DEPRESSION
     Dosage: UNK
  2. LYRICA [Suspect]
     Indication: FIBROMYALGIA
     Dosage: 50 MG, 3X/DAY
     Route: 048
     Dates: start: 20080101
  3. MOBIC [Concomitant]
     Indication: ARTHRITIS
     Dosage: UNK
  4. LISINOPRIL [Concomitant]
     Indication: HYPERTENSION
     Dosage: UNK

REACTIONS (4)
  - TENDON RUPTURE [None]
  - ARTHROPATHY [None]
  - BACK PAIN [None]
  - FALL [None]
